FAERS Safety Report 8763975 (Version 1)
Quarter: 2012Q4

REPORT INFORMATION
  Report Type: 
  Country: GB (occurrence: GB)
  Receive Date: 20120831
  Receipt Date: 20120831
  Transmission Date: 20130627
  Serious: Yes (Hospitalization)
  Sender: FDA-Public Use
  Company Number: GB-PURDUE-USA-2012-0091976

PATIENT
  Age: 80 Year
  Sex: Male

DRUGS (8)
  1. TRAMADOL (SIMILAR TO NDA 21-745) [Suspect]
     Indication: PRODUCT USED FOR UNKNOWN INDICATION
     Dosage: UNK, prn
     Route: 048
     Dates: end: 20120720
  2. ARTHROTEC [Concomitant]
  3. BENDROFLUMETHIAZIDE [Concomitant]
  4. GABAPENTIN [Concomitant]
  5. IPRATROPIUM [Concomitant]
  6. PARACETAMOL [Concomitant]
  7. SALBUTAMOL [Concomitant]
  8. SERETIDE [Concomitant]
     Indication: PRODUCT USED FOR UNKNOWN INDICATION

REACTIONS (3)
  - Dysuria [Unknown]
  - Nocturia [Unknown]
  - Urinary retention [Unknown]
